FAERS Safety Report 8816160 (Version 1)
Quarter: 2012Q4

REPORT INFORMATION
  Report Type: 
  Country: JP (occurrence: JP)
  Receive Date: 20120929
  Receipt Date: 20120929
  Transmission Date: 20130627
  Serious: Yes (Other)
  Sender: FDA-Public Use
  Company Number: JP-009507513-2012SP016133

PATIENT
  Age: 62 Year
  Sex: Male
  Weight: 58 kg

DRUGS (7)
  1. REBETOL [Suspect]
     Indication: HEPATITIS C
     Dosage: 200 mg in the morning, 400 mg in the evening
     Route: 048
     Dates: start: 20110604, end: 20110624
  2. FERON [Suspect]
     Indication: HEPATITIS C
     Dosage: 6 million IU, QD
     Route: 041
     Dates: start: 20110604, end: 20110619
  3. FERON [Suspect]
     Dosage: 6 million IU, QD
     Route: 042
     Dates: start: 20110620, end: 20110624
  4. DEPAS [Concomitant]
     Indication: INSOMNIA
     Dosage: 0.5 mg, qd
     Route: 048
     Dates: start: 20100714, end: 20110612
  5. TERPENONE [Concomitant]
     Indication: PROPHYLAXIS AGAINST GASTROINTESTINAL ULCER
     Dosage: 0.5 g, qw
     Route: 048
     Dates: start: 20110604, end: 20110624
  6. NEO-MINOPHAGEN C [Concomitant]
     Indication: HEPATITIS C
     Dosage: 80 ml, qw
     Route: 051
     Dates: start: 20110411, end: 20110803
  7. SOLANAX [Concomitant]
     Indication: INSOMNIA
     Dosage: 0.4 mg, UNK
     Route: 048
     Dates: start: 20100726, end: 20110723

REACTIONS (8)
  - Blood potassium increased [Unknown]
  - Pyrexia [Recovering/Resolving]
  - Insomnia [Recovering/Resolving]
  - Proteinuria [Not Recovered/Not Resolved]
  - Blood urine present [Recovered/Resolved]
  - Glucose urine present [Unknown]
  - Neutrophil count increased [Not Recovered/Not Resolved]
  - Platelet count decreased [Not Recovered/Not Resolved]
